FAERS Safety Report 17757004 (Version 8)
Quarter: 2024Q4

REPORT INFORMATION
  Report Type: Report from Study
  Country: US (occurrence: US)
  Receive Date: 20200507
  Receipt Date: 20241018
  Transmission Date: 20250115
  Serious: Yes (Other)
  Sender: TAKEDA
  Company Number: US-SHIRE-US202015434

PATIENT
  Age: 19 Year
  Sex: Male

DRUGS (4)
  1. HEMOFIL [Suspect]
     Active Substance: ANTIHEMOPHILIC FACTOR HUMAN
     Indication: Product used for unknown indication
     Dosage: 2000 INTERNATIONAL UNIT
     Route: 042
  2. HEMOFIL [Suspect]
     Active Substance: ANTIHEMOPHILIC FACTOR HUMAN
     Dosage: 1870 INTERNATIONAL UNIT
     Route: 042
  3. HEMOFIL [Suspect]
     Active Substance: ANTIHEMOPHILIC FACTOR HUMAN
     Dosage: 3200 INTERNATIONAL UNIT
     Route: 042
  4. HEMOFIL [Suspect]
     Active Substance: ANTIHEMOPHILIC FACTOR HUMAN
     Dosage: 2000 INTERNATIONAL UNIT, Q12H
     Route: 050

REACTIONS (9)
  - Epistaxis [Recovered/Resolved]
  - Spontaneous haemorrhage [Unknown]
  - Gastric haemorrhage [Unknown]
  - Mouth haemorrhage [Recovered/Resolved]
  - Haemarthrosis [Unknown]
  - Pain in extremity [Recovered/Resolved]
  - Peripheral swelling [Recovered/Resolved]
  - Extra dose administered [Unknown]
  - Arthralgia [Unknown]

NARRATIVE: CASE EVENT DATE: 20200504
